FAERS Safety Report 9368861 (Version 1)
Quarter: 2013Q2

REPORT INFORMATION
  Report Type: Spontaneous
  Country: BR (occurrence: BR)
  Receive Date: 20130626
  Receipt Date: 20130626
  Transmission Date: 20140414
  Serious: Yes (Hospitalization)
  Sender: FDA-Public Use
  Company Number: BR-ABBOTT-13X-020-1109892-00

PATIENT
  Sex: Male

DRUGS (3)
  1. VALPAKINE [Suspect]
     Indication: CONVULSION PROPHYLAXIS
     Dosage: 1 DOSAGE FORM; 3 TIMES A DAY
     Route: 048
     Dates: start: 1993
  2. VALPAKINE [Suspect]
     Dosage: 1 DOSAGE FORM; 3 TIMES A DAY
     Route: 048
  3. LAMICTAL [Concomitant]
     Indication: PRODUCT USED FOR UNKNOWN INDICATION

REACTIONS (2)
  - Drug dose omission [Unknown]
  - Convulsion [Recovered/Resolved]
